FAERS Safety Report 6751024-0 (Version None)
Quarter: 2010Q2

REPORT INFORMATION
  Report Type: 
  Country: None (occurrence: None)
  Receive Date: 20100528
  Receipt Date: 20100512
  Transmission Date: 20101027
  Serious: Yes (Hospitalization)
  Sender: FDA-Public Use
  Company Number: 2010002053

PATIENT
  Age: 60 Year
  Sex: Male

DRUGS (7)
  1. TARCEVA [Suspect]
     Indication: PANCREATIC CARCINOMA
     Dosage: (100 MG,QD), ORAL
     Route: 048
     Dates: start: 20091217, end: 20100108
  2. GRANISETRON HCL [Concomitant]
  3. LANTUS [Concomitant]
  4. KREON (PANCREATIN) [Concomitant]
  5. FENTANYL-100 [Concomitant]
  6. GLYBURIDE (GLIBENCBAMIDE) [Concomitant]
  7. GEMCITABINE [Concomitant]

REACTIONS (3)
  - ALVEOLITIS [None]
  - DYSPNOEA [None]
  - PULMONARY EMBOLISM [None]
